FAERS Safety Report 8830314 (Version 2)
Quarter: 2012Q4

REPORT INFORMATION
  Report Type: 
  Country: ID (occurrence: ID)
  Receive Date: 20121009
  Receipt Date: 20121026
  Transmission Date: 20130627
  Serious: Yes (Life-Threatening, Hospitalization)
  Sender: FDA-Public Use
  Company Number: ID-GE HEALTHCARE MEDICAL DIAGNOSTICS-VISP-NO-1210S-0413

PATIENT
  Age: 54 Year
  Sex: Male
  Weight: 61.3 kg

DRUGS (2)
  1. VISIPAQUE [Suspect]
     Indication: PRODUCT USED FOR UNKNOWN INDICATION
     Route: 042
     Dates: start: 20120924, end: 20120924
  2. VISIPAQUE [Suspect]
     Indication: PHYSICAL EXAMINATION

REACTIONS (7)
  - Urticaria [Recovering/Resolving]
  - Syncope [Recovering/Resolving]
  - Hypotension [Recovering/Resolving]
  - Palpitations [Recovering/Resolving]
  - Pruritus [Recovering/Resolving]
  - Convulsion [Recovering/Resolving]
  - Loss of consciousness [Recovering/Resolving]
